FAERS Safety Report 7598645-3 (Version None)
Quarter: 2011Q3

REPORT INFORMATION
  Report Type: 
  Country: None (occurrence: None)
  Receive Date: 20110711
  Receipt Date: 20110706
  Transmission Date: 20111222
  Serious: Yes (Life-Threatening)
  Sender: FDA-Public Use
  Company Number: FR-BRISTOL-MYERS SQUIBB COMPANY-15881246

PATIENT
  Age: 83 Year
  Sex: Male

DRUGS (6)
  1. INSULIN [Suspect]
     Indication: TYPE 2 DIABETES MELLITUS
     Route: 058
  2. PLACEBO [Suspect]
     Indication: TYPE 2 DIABETES MELLITUS
     Dosage: LAST DOSE: 04-MAR-2011
     Route: 048
     Dates: start: 20110301
  3. INSULIN GLARGINE [Suspect]
     Indication: TYPE 2 DIABETES MELLITUS
     Route: 058
  4. ASPIRIN [Concomitant]
  5. SAXAGLIPTIN [Suspect]
     Indication: TYPE 2 DIABETES MELLITUS
     Dosage: LAST DOSE:04MAR11
     Route: 048
     Dates: start: 20110301
  6. EZETIMIBE [Concomitant]

REACTIONS (2)
  - HYPOGLYCAEMIC COMA [None]
  - OVERDOSE [None]
